FAERS Safety Report 14595926 (Version 2)
Quarter: 2018Q4

REPORT INFORMATION
  Report Type: Spontaneous
  Country: US (occurrence: US)
  Receive Date: 20180303
  Receipt Date: 20181016
  Transmission Date: 20190204
  Serious: No
  Sender: FDA-Public Use
  Company Number: US-JNJFOC-20180134099

PATIENT
  Age: 33 Year
  Sex: Female
  Weight: 81.65 kg

DRUGS (2)
  1. ORTHO TRI CYCLEN [Suspect]
     Active Substance: ETHINYL ESTRADIOL\NORGESTIMATE
     Indication: CONTRACEPTION
     Route: 048
     Dates: end: 201707
  2. ORTHO TRI CYCLEN [Suspect]
     Active Substance: ETHINYL ESTRADIOL\NORGESTIMATE
     Indication: CONTRACEPTION
     Route: 048
     Dates: start: 20180116

REACTIONS (3)
  - Product dose omission [Unknown]
  - Menstruation irregular [Unknown]
  - Metrorrhagia [Unknown]

NARRATIVE: CASE EVENT DATE: 201707
